FAERS Safety Report 17874696 (Version 2)
Quarter: 2020Q2

REPORT INFORMATION
  Report Type: Spontaneous
  Country: RU (occurrence: RU)
  Receive Date: 20200609
  Receipt Date: 20200619
  Transmission Date: 20200714
  Serious: Yes (Hospitalization)
  Sender: FDA-Public Use
  Company Number: NVSC2020RU157841

PATIENT
  Age: 9 Year
  Sex: Female

DRUGS (1)
  1. OXCARBAZEPINE. [Suspect]
     Active Substance: OXCARBAZEPINE
     Indication: EPILEPSY
     Dosage: UNK
     Route: 065

REACTIONS (3)
  - Status epilepticus [Unknown]
  - Seizure [Unknown]
  - Haematuria [Unknown]
